FAERS Safety Report 7909569-3 (Version None)
Quarter: 2011Q4

REPORT INFORMATION
  Report Type: 
  Country: None (occurrence: None)
  Receive Date: 20111111
  Receipt Date: 20111031
  Transmission Date: 20120403
  Serious: Yes (Death)
  Sender: FDA-Public Use
  Company Number: US-PFIZER INC-2011247967

PATIENT
  Sex: Male
  Weight: 72 kg

DRUGS (8)
  1. MORPHINE SULFATE [Suspect]
  2. CLONAZEPAM [Concomitant]
  3. PROPOXYPHENE HYDROCHLORIDE [Concomitant]
  4. DIAZEPAM [Concomitant]
  5. METHADONE HCL [Suspect]
  6. TRAMADOL [Concomitant]
  7. OXYCODONE HCL [Suspect]
  8. TEMAZEPAM [Concomitant]

REACTIONS (1)
  - MULTIPLE DRUG OVERDOSE ACCIDENTAL [None]
